FAERS Safety Report 7658309-4 (Version None)
Quarter: 2011Q3

REPORT INFORMATION
  Report Type: 
  Country: None (occurrence: None)
  Receive Date: 20110805
  Receipt Date: 20110804
  Transmission Date: 20111222
  Serious: No
  Sender: FDA-Public Use
  Company Number: US-PFIZER INC-2011178534

PATIENT
  Sex: Female

DRUGS (1)
  1. ADVIL LIQUI-GELS [Suspect]
     Indication: PYREXIA
     Dosage: UNK
     Dates: start: 20110803

REACTIONS (2)
  - FEELING COLD [None]
  - BODY TEMPERATURE DECREASED [None]
